FAERS Safety Report 5569809-5 (Version None)
Quarter: 2007Q4

REPORT INFORMATION
  Report Type: 
  Country: None (occurrence: None)
  Receive Date: 20071218
  Receipt Date: 20071203
  Transmission Date: 20080405
  Serious: Yes (Life-Threatening, Hospitalization)
  Sender: FDA-Public Use
  Company Number: 2007S1013063

PATIENT
  Age: 68 Year
  Sex: Female
  Weight: 60 kg

DRUGS (12)
  1. ATENOLOL [Suspect]
     Indication: HYPERTENSION
     Dosage: 100 MG; DAILY; ORAL
     Route: 048
     Dates: end: 20071024
  2. CO-AMILOFRUSE              (FRUMIL) [Suspect]
     Dosage: 1 DF; DAILY; ORAL
     Route: 048
     Dates: end: 20071024
  3. NIFEDIPINE [Suspect]
     Dosage: 90 MG; DAILY; ORAL
     Route: 048
     Dates: end: 20071024
  4. AMITRIPTYLINE HCL [Concomitant]
  5. ASPIRIN [Concomitant]
  6. COD LIVER OIL [Concomitant]
  7. CO-PROXAMOL [Concomitant]
  8. GLYBURIDE [Concomitant]
  9. IBUPROFEN [Concomitant]
  10. INSULATARD [Concomitant]
  11. METFORMIN HCL [Concomitant]
  12. ATORVASTATIN [Concomitant]

REACTIONS (6)
  - ATRIOVENTRICULAR BLOCK COMPLETE [None]
  - BLOOD GLUCOSE INCREASED [None]
  - BRADYCARDIA [None]
  - HYPOTENSION [None]
  - LACTIC ACIDOSIS [None]
  - MALAISE [None]
